FAERS Safety Report 7885083-9 (Version None)
Quarter: 2011Q4

REPORT INFORMATION
  Report Type: 
  Country: None (occurrence: None)
  Receive Date: 20111102
  Receipt Date: 20100826
  Transmission Date: 20120403
  Serious: No
  Sender: FDA-Public Use
  Company Number: US-BAYER-201031799NA

PATIENT
  Sex: Male

DRUGS (2)
  1. ZYRTEC [Concomitant]
  2. AVELOX [Suspect]
     Indication: PNEUMONIA
     Dosage: UNK
     Route: 048
     Dates: start: 20100401

REACTIONS (2)
  - TENDON DISORDER [None]
  - ABDOMINAL DISCOMFORT [None]
